FAERS Safety Report 5661446-7 (Version None)
Quarter: 2008Q1

REPORT INFORMATION
  Report Type: 
  Country: None (occurrence: None)
  Receive Date: 20080311
  Receipt Date: 20080228
  Transmission Date: 20080703
  Serious: Yes (Hospitalization)
  Sender: FDA-Public Use
  Company Number: FR-PFIZER INC-2008020083

PATIENT
  Sex: Male

DRUGS (1)
  1. GENOTONORM [Suspect]
     Indication: PRADER-WILLI SYNDROME
     Route: 058

REACTIONS (1)
  - SLEEP APNOEA SYNDROME [None]
